FAERS Safety Report 4679410-3 (Version None)
Quarter: 2005Q2

REPORT INFORMATION
  Report Type: 
  Country: None (occurrence: None)
  Receive Date: 20050602
  Receipt Date: 20050419
  Transmission Date: 20051028
  Serious: Yes (Death)
  Sender: FDA-Public Use
  Company Number: 200511201JP

PATIENT
  Age: 78 Year
  Sex: Female
  Weight: 62 kg

DRUGS (4)
  1. TAXOTERE [Suspect]
     Indication: METASTASES TO LIVER
     Route: 041
     Dates: start: 20050221, end: 20050404
  2. TAXOTERE [Suspect]
     Indication: METASTASES TO LUNG
     Route: 041
     Dates: start: 20050221, end: 20050404
  3. KYTRIL [Concomitant]
     Indication: PROPHYLAXIS
     Route: 041
     Dates: start: 20050221, end: 20050404
  4. DECADRON [Concomitant]
     Indication: PROPHYLAXIS
     Route: 041
     Dates: start: 20050221, end: 20050404

REACTIONS (2)
  - INTERSTITIAL LUNG DISEASE [None]
  - PALPITATIONS [None]
